FAERS Safety Report 6276359-X (Version None)
Quarter: 2009Q3

REPORT INFORMATION
  Report Type: 
  Country: None (occurrence: None)
  Receive Date: 20090722
  Receipt Date: 20090709
  Transmission Date: 20100115
  Serious: Yes (Other)
  Sender: FDA-Public Use
  Company Number: PHHY2009SE01862

PATIENT
  Sex: Female

DRUGS (6)
  1. VOLTAREN [Suspect]
     Indication: BACK PAIN
     Dosage: UNK
     Route: 048
     Dates: start: 20040101
  2. STESOLID [Interacting]
     Dosage: UNK
     Dates: start: 20040101
  3. TEGRETOL [Concomitant]
     Dosage: 700MG PER DAY
     Route: 048
     Dates: start: 19800101
  4. ACETAMINOPHEN W/ CODEINE [Concomitant]
     Dosage: UNK
     Dates: start: 20040101
  5. LAMICTAL [Concomitant]
     Dosage: 100MG PER DAY
     Dates: start: 19800101
  6. ATARAX [Concomitant]

REACTIONS (6)
  - ANALGESIC DRUG LEVEL INCREASED [None]
  - CEREBRAL HAEMORRHAGE [None]
  - DRUG INTERACTION [None]
  - HEADACHE [None]
  - MUSCLE SPASMS [None]
  - THERAPEUTIC EMBOLISATION [None]
